FAERS Safety Report 14682512 (Version 1)
Quarter: 2018Q1

REPORT INFORMATION
  Report Type: Spontaneous
  Country: DE (occurrence: DE)
  Receive Date: 20180327
  Receipt Date: 20180327
  Transmission Date: 20180509
  Serious: Yes (Hospitalization)
  Sender: FDA-Public Use
  Company Number: DE-AUROBINDO-AUR-APL-2018-016335

PATIENT
  Age: 57 Year
  Sex: Female

DRUGS (2)
  1. PARACETAMOL [Suspect]
     Active Substance: ACETAMINOPHEN
     Indication: PRODUCT USED FOR UNKNOWN INDICATION
     Dosage: ()
     Route: 065
  2. FLUPIRTINE [Suspect]
     Active Substance: FLUPIRTINE
     Indication: RHEUMATOID ARTHRITIS
     Dosage: 200 (UNIT NOT STATED) ()
     Route: 065

REACTIONS (1)
  - Drug-induced liver injury [Recovering/Resolving]
